FAERS Safety Report 17419945 (Version 3)
Quarter: 2020Q1

REPORT INFORMATION
  Report Type: Report from Study
  Country: CO (occurrence: CO)
  Receive Date: 20200214
  Receipt Date: 20200227
  Transmission Date: 20200409
  Serious: Yes (Death, Hospitalization, Other)
  Sender: FDA-Public Use
  Company Number: CO-ASTRAZENECA-2020SE22164

PATIENT
  Age: 19783 Day
  Sex: Male

DRUGS (2)
  1. BRILINTA [Suspect]
     Active Substance: TICAGRELOR
     Indication: ACUTE CORONARY SYNDROME
     Route: 048
     Dates: start: 20190415, end: 20190808
  2. BRILINTA [Suspect]
     Active Substance: TICAGRELOR
     Indication: ACUTE CORONARY SYNDROME
     Route: 048
     Dates: start: 20191018, end: 20191115

REACTIONS (9)
  - Cerebral haemorrhage [Unknown]
  - Cerebral vascular occlusion [Unknown]
  - Gastrointestinal haemorrhage [Recovered/Resolved]
  - Faeces discoloured [Recovered/Resolved]
  - Colon neoplasm [Unknown]
  - Cerebrovascular disorder [Unknown]
  - Death [Fatal]
  - Haemoglobin decreased [Not Recovered/Not Resolved]
  - Kaposi^s sarcoma [Unknown]

NARRATIVE: CASE EVENT DATE: 20190721
